FAERS Safety Report 18410423 (Version 2)
Quarter: 2020Q4

REPORT INFORMATION
  Report Type: Spontaneous
  Country: US (occurrence: US)
  Receive Date: 20201021
  Receipt Date: 20201023
  Transmission Date: 20210114
  Serious: No
  Sender: FDA-Public Use
  Company Number: US-PFIZER INC-2020404366

PATIENT
  Age: 60 Year
  Sex: Male
  Weight: 71.4 kg

DRUGS (2)
  1. MEXILETINE [Suspect]
     Active Substance: MEXILETINE
     Dosage: UNK
     Dates: end: 2020
  2. DOFETILIDE. [Suspect]
     Active Substance: DOFETILIDE
     Dosage: UNK
     Dates: end: 2020

REACTIONS (4)
  - Gastrointestinal disorder [Unknown]
  - Drug ineffective [Unknown]
  - Decreased appetite [Unknown]
  - Weight decreased [Unknown]

NARRATIVE: CASE EVENT DATE: 2020
